FAERS Safety Report 10383119 (Version 2)
Quarter: 2014Q3

REPORT INFORMATION
  Report Type: Spontaneous
  Country: US (occurrence: US)
  Receive Date: 20140813
  Receipt Date: 20140915
  Transmission Date: 20150326
  Serious: No
  Sender: FDA-Public Use
  Company Number: US-009507513-1408USA008246

PATIENT
  Age: 64 Year
  Sex: Female
  Weight: 70.3 kg

DRUGS (30)
  1. SERTRALINE HYDROCHLORIDE. [Concomitant]
     Active Substance: SERTRALINE HYDROCHLORIDE
     Indication: SLEEP DISORDER THERAPY
  2. ASPIRIN. [Concomitant]
     Active Substance: ASPIRIN
     Indication: CEREBRAL ARTERIOSCLEROSIS
     Dosage: 81 MG, QD
     Dates: start: 20101029
  3. MIRALAX [Concomitant]
     Active Substance: POLYETHYLENE GLYCOL 3350
     Indication: CONSTIPATION
     Dosage: 17 G, PRN
     Dates: start: 20101029
  4. SYSTANE [Concomitant]
     Active Substance: HYPROMELLOSE 2910 (4000 MPA.S)
     Indication: EYE PRURITUS
  5. APOVIT VITAMIN D3 [Concomitant]
     Dosage: UNK, QD
     Dates: start: 20140714
  6. SYSTANE [Concomitant]
     Active Substance: HYPROMELLOSE 2910 (4000 MPA.S)
     Indication: EYE IRRITATION
  7. ALEVE [Concomitant]
     Active Substance: NAPROXEN SODIUM
     Indication: HEADACHE
     Dosage: 220 MG, PRN
     Dates: start: 20121009
  8. ASPIRIN. [Concomitant]
     Active Substance: ASPIRIN
     Indication: CAROTID ARTERY OCCLUSION
  9. OXYTROL FOR WOMEN [Suspect]
     Active Substance: OXYBUTYNIN
     Indication: POLLAKIURIA
     Dosage: UNK, UNKNOWN
     Route: 062
     Dates: start: 201406
  10. LEVOTHYROXINE SODIUM. [Concomitant]
     Active Substance: LEVOTHYROXINE SODIUM
     Indication: HYPOTHYROIDISM
     Dosage: 125 MG, QD
     Dates: start: 20140702
  11. TOPIRAMATE. [Concomitant]
     Active Substance: TOPIRAMATE
     Indication: HEADACHE
     Dosage: 100 MG, BID
     Dates: start: 20140623
  12. APOVIT VITAMIN D3 [Concomitant]
     Indication: PRODUCT USED FOR UNKNOWN INDICATION
     Dosage: UNK, QD
     Dates: start: 20140714
  13. SERTRALINE HYDROCHLORIDE. [Concomitant]
     Active Substance: SERTRALINE HYDROCHLORIDE
     Indication: DEPRESSION
     Dosage: 200 MG, QD
     Dates: start: 20130228
  14. FLUOCINOL [Concomitant]
     Indication: ONYCHOLYSIS
     Dosage: UNK, PRN
     Dates: start: 20120727
  15. SYSTANE [Concomitant]
     Active Substance: HYPROMELLOSE 2910 (4000 MPA.S)
     Indication: DRY EYE
     Dosage: UNK, QID
     Dates: start: 20131205
  16. SCHIFF DIGESTIVE ADVANTAGE INTENSIVE BOWEL SUPPORT [Concomitant]
     Indication: GASTROINTESTINAL DISORDER
     Dosage: UNK, QD
     Dates: start: 20140515
  17. FLUTICASONE PROPIONATE. [Concomitant]
     Active Substance: FLUTICASONE PROPIONATE
     Indication: CHRONIC SINUSITIS
     Dosage: UNK
     Route: 045
     Dates: start: 20131010
  18. PREVIDENT [Concomitant]
     Active Substance: SODIUM FLUORIDE
     Indication: DRY MOUTH
     Dosage: UNK, QD
     Dates: start: 20111215
  19. CICLOPIROX. [Concomitant]
     Active Substance: CICLOPIROX
     Indication: ONYCHOLYSIS
     Dosage: UNK, PRN
     Dates: start: 20121220
  20. ZOLPIDEM TARTRATE. [Concomitant]
     Active Substance: ZOLPIDEM TARTRATE
     Indication: SLEEP DISORDER THERAPY
     Dosage: 10 MG, PRN
     Dates: start: 20130409
  21. MIDRIN [Concomitant]
     Active Substance: ACETAMINOPHEN\DICHLORALPHENAZONE\ISOMETHEPTENE
     Indication: HEADACHE
     Dosage: UNK, PRN
     Dates: start: 20140523
  22. DESOXIMETASONE. [Concomitant]
     Active Substance: DESOXIMETASONE
     Indication: RASH
     Dosage: UNK, BID
     Dates: start: 20140805
  23. NATURES MADE CHOLEST OFF [Concomitant]
     Indication: PRODUCT USED FOR UNKNOWN INDICATION
     Dosage: UNK, BID
     Dates: start: 20140726
  24. DIGESTIVE ADVANTAGE LACTOSE INTOLERANCE THERAPY [Concomitant]
     Indication: LACTOSE INTOLERANCE
     Dosage: UNK, QD
     Dates: start: 20140505
  25. NORTRIPTYLINE [Concomitant]
     Active Substance: NORTRIPTYLINE
     Indication: SLEEP DISORDER THERAPY
  26. ZINC (UNSPECIFIED) [Concomitant]
     Indication: AGEUSIA
     Dosage: UNK, UNKNOWN
     Dates: start: 20101202
  27. CLONAZEPAM. [Concomitant]
     Active Substance: CLONAZEPAM
     Indication: GLOSSODYNIA
     Dosage: 0.5 MG, TID
     Dates: start: 20130624
  28. NORTRIPTYLINE [Concomitant]
     Active Substance: NORTRIPTYLINE
     Indication: DEPRESSION
     Dosage: 50 MG, QD
     Dates: start: 20130701
  29. ALPHAGAN P [Concomitant]
     Active Substance: BRIMONIDINE TARTRATE
     Indication: PRODUCT USED FOR UNKNOWN INDICATION
     Dosage: 3 ML, PRN
     Dates: start: 20130109
  30. ASCORBIC ACID. [Concomitant]
     Active Substance: ASCORBIC ACID
     Indication: PRODUCT USED FOR UNKNOWN INDICATION
     Dosage: 1000 MG, UNKNOWN
     Dates: start: 20140609

REACTIONS (5)
  - Rash [Unknown]
  - Application site erythema [Unknown]
  - Product quality issue [Unknown]
  - Application site vesicles [Unknown]
  - Application site pruritus [Unknown]

NARRATIVE: CASE EVENT DATE: 20140807
